FAERS Safety Report 10494325 (Version 4)
Quarter: 2014Q4

REPORT INFORMATION
  Report Type: Report from Study
  Country: US (occurrence: US)
  Receive Date: 20141030
  Receipt Date: 20141223
  Transmission Date: 20150528
  Serious: No
  Sender: FDA-Public Use
  Company Number: US-GLAXOSMITHKLINE-A0954775A

PATIENT
  Sex: Female
  Weight: 96.8 kg

DRUGS (8)
  1. FLUTICASONE PROPIONATE+SALMETEROL XINAFOATE [Suspect]
     Active Substance: FLUTICASONE PROPIONATE\SALMETEROL XINAFOATE
     Indication: DYSPNOEA
     Route: 055
  2. SPIRIVA [Suspect]
     Active Substance: TIOTROPIUM BROMIDE MONOHYDRATE
  3. INFLUENZA VACCINE [Concomitant]
     Active Substance: INFLUENZA VIRUS VACCINE
  4. CONCURRENT MEDICATIONS [Concomitant]
     Active Substance: UNSPECIFIED INGREDIENT
  5. FLUTICASONE PROPIONATE+SALMETEROL XINAFOATE [Suspect]
     Active Substance: FLUTICASONE PROPIONATE\SALMETEROL XINAFOATE
     Indication: CHRONIC OBSTRUCTIVE PULMONARY DISEASE
  6. BLOOD PRESSURE MEDICATION [Suspect]
     Active Substance: UNSPECIFIED INGREDIENT
  7. MEDICATION UNKNOWN [Suspect]
     Active Substance: UNSPECIFIED INGREDIENT
     Indication: RESTLESS LEGS SYNDROME
     Dosage: UNK, U
  8. ACETAMINOPHEN WITH CODEINE (TYLENOL 3) [Concomitant]
     Indication: BACK DISORDER

REACTIONS (19)
  - Dry mouth [Unknown]
  - Nasal congestion [Unknown]
  - Dizziness [Unknown]
  - Orthopnoea [Unknown]
  - Blood pressure decreased [Unknown]
  - Drug administration error [Unknown]
  - Tremor [Unknown]
  - Dyspnoea [Unknown]
  - Somnolence [Unknown]
  - Mucous membrane disorder [Unknown]
  - Mouth breathing [Unknown]
  - Activities of daily living impaired [Unknown]
  - Fatigue [Unknown]
  - Depression [Unknown]
  - Abdominal distension [Unknown]
  - Sinusitis [Unknown]
  - Asthenia [Unknown]
  - Sleep apnoea syndrome [Unknown]
  - Weight decreased [Unknown]

NARRATIVE: CASE EVENT DATE: 2012
